FAERS Safety Report 25902761 (Version 1)
Quarter: 2025Q4

REPORT INFORMATION
  Report Type: Spontaneous
  Country: EU (occurrence: EU)
  Receive Date: 20251009
  Receipt Date: 20251009
  Transmission Date: 20260118
  Serious: Yes (Other)
  Sender: EISAI
  Company Number: None

PATIENT
  Age: 69 Year
  Sex: Female

DRUGS (2)
  1. LENVATINIB [Suspect]
     Active Substance: LENVATINIB
     Indication: Lung cancer metastatic
     Route: 048
     Dates: start: 20250126, end: 20250730
  2. KEYTRUDA [Interacting]
     Active Substance: PEMBROLIZUMAB
     Indication: Lung cancer metastatic
     Route: 042
     Dates: start: 20250126

REACTIONS (3)
  - Cachexia [Unknown]
  - Decreased appetite [Unknown]
  - Drug interaction [Unknown]

NARRATIVE: CASE EVENT DATE: 20250501
